FAERS Safety Report 4479298-X (Version None)
Quarter: 2004Q4

REPORT INFORMATION
  Report Type: 
  Country: None (occurrence: None)
  Receive Date: 20041015
  Receipt Date: 20041005
  Transmission Date: 20050328
  Serious: Yes (Hospitalization)
  Sender: FDA-Public Use
  Company Number: 001-0981-994095

PATIENT
  Age: 74 Year
  Sex: Male
  Weight: 59.8748 kg

DRUGS (7)
  1. ATORVASTATIN (ATORVASTATIN) [Suspect]
     Indication: CORONARY ARTERY DISEASE
     Dosage: SEE IMAGE
     Route: 048
     Dates: start: 19981218, end: 19990217
  2. ATORVASTATIN (ATORVASTATIN) [Suspect]
     Indication: CORONARY ARTERY DISEASE
     Dosage: SEE IMAGE
     Route: 048
     Dates: start: 19990218, end: 19990519
  3. BISOPROLOL FUMARATE [Concomitant]
  4. ASPIRIN [Concomitant]
  5. MAXIDEN (BENZALKONIUM CHLORIDE, DEXAMETHASONE, PHENYLMERCURIC NITRATE0 [Concomitant]
  6. BISOPROLOL FUMARATE [Concomitant]
  7. WARFARIN SODIUM (BISOPROLOL FUMARATE) [Concomitant]

REACTIONS (11)
  - ATRIAL FIBRILLATION [None]
  - CARDIAC FAILURE [None]
  - CORONARY ARTERY DISEASE [None]
  - COUGH [None]
  - DYSPNOEA [None]
  - EPIGASTRIC DISCOMFORT [None]
  - FEELING ABNORMAL [None]
  - HAEMATURIA [None]
  - INTERNATIONAL NORMALISED RATIO INCREASED [None]
  - MALAISE [None]
  - PROTHROMBIN TIME PROLONGED [None]
